FAERS Safety Report 9542028 (Version 2)
Quarter: 2013Q4

REPORT INFORMATION
  Report Type: Spontaneous
  Country: US (occurrence: US)
  Receive Date: 20130923
  Receipt Date: 20131008
  Transmission Date: 20140711
  Serious: Yes (Life-Threatening, Other)
  Sender: FDA-Public Use
  Company Number: US-009507513-1309USA006512

PATIENT
  Age: 39 Year
  Sex: Female

DRUGS (1)
  1. NUVARING [Suspect]
     Indication: CONTRACEPTION
     Dosage: RING CONTINUOUSLY WITH NO ONE RING-FREE WEEK
     Route: 067

REACTIONS (4)
  - Retinal haemorrhage [Unknown]
  - Cerebrovascular accident [Unknown]
  - Deep vein thrombosis [Unknown]
  - Incorrect drug administration duration [Unknown]
